FAERS Safety Report 8965283 (Version 1)
Quarter: 2012Q4

REPORT INFORMATION
  Report Type: Report from Study
  Country: US (occurrence: US)
  Receive Date: 20121213
  Receipt Date: 20121213
  Transmission Date: 20130627
  Serious: Yes (Hospitalization)
  Sender: FDA-Public Use
  Company Number: US-US-EMD SERONO, INC.-7180983

PATIENT
  Age: 40 Year
  Sex: Female

DRUGS (4)
  1. REBIF [Suspect]
     Indication: MULTIPLE SCLEROSIS
     Route: 058
     Dates: start: 20120813
  2. REBIF [Suspect]
     Route: 058
  3. LYRICA [Suspect]
     Indication: PAIN
  4. LORTAB [Suspect]
     Indication: PAIN

REACTIONS (7)
  - Confusional state [Unknown]
  - Disorientation [Unknown]
  - Accidental overdose [Unknown]
  - Memory impairment [Unknown]
  - Muscular weakness [Unknown]
  - Fall [Unknown]
  - Arthralgia [Unknown]
